FAERS Safety Report 12224275 (Version 2)
Quarter: 2016Q2

REPORT INFORMATION
  Report Type: Spontaneous
  Country: US (occurrence: US)
  Receive Date: 20160331
  Receipt Date: 20160513
  Transmission Date: 20160815
  Serious: No
  Sender: FDA-Public Use
  Company Number: US-009507513-1603USA011494

PATIENT
  Age: 19 Year
  Sex: Female
  Weight: 77.98 kg

DRUGS (2)
  1. NEXPLANON [Suspect]
     Active Substance: ETONOGESTREL
     Indication: CONTRACEPTION
     Dosage: 68 MG, EVERY 3 YEARS
     Route: 059
     Dates: start: 20160119, end: 20160119
  2. NEXPLANON [Suspect]
     Active Substance: ETONOGESTREL
     Dosage: 68 MG, EVERY 3 YEARS
     Route: 059
     Dates: start: 20160119, end: 20160426

REACTIONS (6)
  - Vaginal haemorrhage [Unknown]
  - Alopecia [Unknown]
  - Complication associated with device [Recovered/Resolved]
  - Product quality issue [Unknown]
  - Device difficult to use [Recovered/Resolved]
  - No adverse event [Unknown]

NARRATIVE: CASE EVENT DATE: 2016
